FAERS Safety Report 10101808 (Version 1)
Quarter: 2014Q2

REPORT INFORMATION
  Report Type: Spontaneous
  Country: US (occurrence: None)
  Receive Date: 20140422
  Receipt Date: 20140422
  Transmission Date: 20141212
  Serious: Yes (Hospitalization)
  Sender: FDA-Public Use
  Company Number: 2014P1003118

PATIENT
  Age: 67 Year
  Sex: Female

DRUGS (3)
  1. CEFTRIAXONE [Suspect]
     Indication: ARTHRITIS INFECTIVE
     Route: 042
  2. VANCOMYCIN [Suspect]
     Indication: ARTHRITIS INFECTIVE
     Route: 042
  3. TOBRAMYCIN [Concomitant]

REACTIONS (13)
  - Arthralgia [None]
  - Rash [None]
  - Pyrexia [None]
  - Blood pressure decreased [None]
  - Dermatitis exfoliative [None]
  - White blood cell count increased [None]
  - Lymphadenopathy [None]
  - Eosinophilia [None]
  - Eosinophilic pneumonia [None]
  - Drug reaction with eosinophilia and systemic symptoms [None]
  - Dermatitis [None]
  - Cerebrovascular accident [None]
  - Cerebral infarction [None]
